FAERS Safety Report 13125264 (Version 1)
Quarter: 2017Q1

REPORT INFORMATION
  Report Type: Spontaneous
  Country: US (occurrence: US)
  Receive Date: 20170117
  Receipt Date: 20170117
  Transmission Date: 20170428
  Serious: No
  Sender: FDA-Public Use
  Company Number: None

PATIENT
  Age: 70 Year
  Sex: Male
  Weight: 121.8 kg

DRUGS (1)
  1. ACETAMINOPHEN/CHLORPHENIRAMINE [Suspect]
     Active Substance: ACETAMINOPHEN\CHLORPHENIRAMINE
     Indication: PULMONARY CONGESTION
     Dates: start: 20161209, end: 20161209

REACTIONS (1)
  - Anaphylactic reaction [None]

NARRATIVE: CASE EVENT DATE: 20161209
